FAERS Safety Report 8530038-4 (Version None)
Quarter: 2012Q3

REPORT INFORMATION
  Report Type: 
  Country: None (occurrence: None)
  Receive Date: 20120723
  Receipt Date: 20120712
  Transmission Date: 20120928
  Serious: Yes (Hospitalization)
  Sender: FDA-Public Use
  Company Number: US-JNJFOC-20120707072

PATIENT
  Age: 61 Year
  Sex: Female

DRUGS (8)
  1. CONCERTA [Suspect]
     Indication: PRODUCT USED FOR UNKNOWN INDICATION
     Route: 048
  2. ABILIFY [Concomitant]
     Route: 048
  3. CYMBALTA [Concomitant]
     Route: 048
  4. NUVIGIL [Concomitant]
     Route: 048
  5. NOR-QD [Concomitant]
     Route: 048
  6. KLONOPIN [Concomitant]
     Route: 048
  7. PREMARIN [Concomitant]
     Route: 065
  8. SYNTHROID [Concomitant]
     Route: 048

REACTIONS (1)
  - ACUTE CORONARY SYNDROME [None]
